FAERS Safety Report 17840262 (Version 10)
Quarter: 2025Q3

REPORT INFORMATION
  Report Type: Spontaneous
  Country: EU (occurrence: EU)
  Receive Date: 20200529
  Receipt Date: 20250728
  Transmission Date: 20251021
  Serious: Yes (Other)
  Sender: MYLAN
  Company Number: EU-PFIZER INC-2020195183

PATIENT
  Age: 9 Year
  Sex: Male

DRUGS (64)
  1. DOXORUBICIN [Suspect]
     Active Substance: DOXORUBICIN
     Indication: Alveolar rhabdomyosarcoma
     Route: 065
  2. DOXORUBICIN [Suspect]
     Active Substance: DOXORUBICIN
  3. DOXORUBICIN [Suspect]
     Active Substance: DOXORUBICIN
  4. DOXORUBICIN [Suspect]
     Active Substance: DOXORUBICIN
     Route: 065
  5. DOXORUBICIN [Suspect]
     Active Substance: DOXORUBICIN
     Route: 065
  6. DOXORUBICIN [Suspect]
     Active Substance: DOXORUBICIN
  7. DOXORUBICIN [Suspect]
     Active Substance: DOXORUBICIN
  8. DOXORUBICIN [Suspect]
     Active Substance: DOXORUBICIN
     Route: 065
  9. TOPOTECAN [Suspect]
     Active Substance: TOPOTECAN HYDROCHLORIDE
     Indication: Alveolar rhabdomyosarcoma
  10. TOPOTECAN [Suspect]
     Active Substance: TOPOTECAN HYDROCHLORIDE
     Route: 065
  11. TOPOTECAN [Suspect]
     Active Substance: TOPOTECAN HYDROCHLORIDE
     Route: 065
  12. TOPOTECAN [Suspect]
     Active Substance: TOPOTECAN HYDROCHLORIDE
  13. IRINOTECAN [Suspect]
     Active Substance: IRINOTECAN
     Indication: Alveolar rhabdomyosarcoma
  14. IRINOTECAN [Suspect]
     Active Substance: IRINOTECAN
     Route: 065
  15. IRINOTECAN [Suspect]
     Active Substance: IRINOTECAN
     Route: 065
  16. IRINOTECAN [Suspect]
     Active Substance: IRINOTECAN
  17. ETOPOSIDE [Suspect]
     Active Substance: ETOPOSIDE
     Indication: Alveolar rhabdomyosarcoma
  18. ETOPOSIDE [Suspect]
     Active Substance: ETOPOSIDE
     Route: 042
  19. ETOPOSIDE [Suspect]
     Active Substance: ETOPOSIDE
     Route: 042
  20. ETOPOSIDE [Suspect]
     Active Substance: ETOPOSIDE
  21. CYTARABINE [Suspect]
     Active Substance: CYTARABINE
  22. CYTARABINE [Suspect]
     Active Substance: CYTARABINE
     Route: 065
  23. CYTARABINE [Suspect]
     Active Substance: CYTARABINE
     Route: 065
  24. CYTARABINE [Suspect]
     Active Substance: CYTARABINE
  25. FLUDARABINE [Suspect]
     Active Substance: FLUDARABINE PHOSPHATE
  26. FLUDARABINE [Suspect]
     Active Substance: FLUDARABINE PHOSPHATE
     Route: 065
  27. FLUDARABINE [Suspect]
     Active Substance: FLUDARABINE PHOSPHATE
     Route: 065
  28. FLUDARABINE [Suspect]
     Active Substance: FLUDARABINE PHOSPHATE
  29. CARBOPLATIN [Suspect]
     Active Substance: CARBOPLATIN
     Indication: Alveolar rhabdomyosarcoma
  30. CARBOPLATIN [Suspect]
     Active Substance: CARBOPLATIN
     Indication: Rhabdomyosarcoma
     Route: 065
  31. CARBOPLATIN [Suspect]
     Active Substance: CARBOPLATIN
     Indication: Acute myeloid leukaemia
     Route: 065
  32. CARBOPLATIN [Suspect]
     Active Substance: CARBOPLATIN
  33. IFOSFAMIDE [Suspect]
     Active Substance: IFOSFAMIDE
     Indication: Rhabdomyosarcoma
  34. IFOSFAMIDE [Suspect]
     Active Substance: IFOSFAMIDE
     Indication: Alveolar rhabdomyosarcoma
     Route: 065
  35. IFOSFAMIDE [Suspect]
     Active Substance: IFOSFAMIDE
     Route: 065
  36. IFOSFAMIDE [Suspect]
     Active Substance: IFOSFAMIDE
  37. CACTINOMYCIN [Suspect]
     Active Substance: CACTINOMYCIN
     Indication: Alveolar rhabdomyosarcoma
  38. CACTINOMYCIN [Suspect]
     Active Substance: CACTINOMYCIN
     Route: 065
  39. CACTINOMYCIN [Suspect]
     Active Substance: CACTINOMYCIN
     Route: 065
  40. CACTINOMYCIN [Suspect]
     Active Substance: CACTINOMYCIN
  41. TROFOSFAMIDE [Suspect]
     Active Substance: TROFOSFAMIDE
     Indication: Alveolar rhabdomyosarcoma
     Route: 065
  42. TROFOSFAMIDE [Suspect]
     Active Substance: TROFOSFAMIDE
  43. TROFOSFAMIDE [Suspect]
     Active Substance: TROFOSFAMIDE
  44. TROFOSFAMIDE [Suspect]
     Active Substance: TROFOSFAMIDE
     Route: 065
  45. TROFOSFAMIDE [Suspect]
     Active Substance: TROFOSFAMIDE
     Route: 065
  46. TROFOSFAMIDE [Suspect]
     Active Substance: TROFOSFAMIDE
  47. TROFOSFAMIDE [Suspect]
     Active Substance: TROFOSFAMIDE
  48. TROFOSFAMIDE [Suspect]
     Active Substance: TROFOSFAMIDE
     Route: 065
  49. VINCRISTINE [Suspect]
     Active Substance: VINCRISTINE
     Indication: Rhabdomyosarcoma
  50. VINCRISTINE [Suspect]
     Active Substance: VINCRISTINE
     Indication: Alveolar rhabdomyosarcoma
     Route: 065
  51. VINCRISTINE [Suspect]
     Active Substance: VINCRISTINE
     Route: 065
  52. VINCRISTINE [Suspect]
     Active Substance: VINCRISTINE
  53. ETOPOSIDE [Suspect]
     Active Substance: ETOPOSIDE
     Indication: Alveolar rhabdomyosarcoma
  54. ETOPOSIDE [Suspect]
     Active Substance: ETOPOSIDE
     Route: 048
  55. ETOPOSIDE [Suspect]
     Active Substance: ETOPOSIDE
     Route: 048
  56. ETOPOSIDE [Suspect]
     Active Substance: ETOPOSIDE
  57. CYCLOPHOSPHAMIDE [Suspect]
     Active Substance: CYCLOPHOSPHAMIDE
     Indication: Rhabdomyosarcoma
  58. CYCLOPHOSPHAMIDE [Suspect]
     Active Substance: CYCLOPHOSPHAMIDE
     Indication: Alveolar rhabdomyosarcoma
     Route: 065
  59. CYCLOPHOSPHAMIDE [Suspect]
     Active Substance: CYCLOPHOSPHAMIDE
     Route: 065
  60. CYCLOPHOSPHAMIDE [Suspect]
     Active Substance: CYCLOPHOSPHAMIDE
  61. IDARUBICIN HYDROCHLORIDE [Suspect]
     Active Substance: IDARUBICIN HYDROCHLORIDE
     Indication: Rhabdomyosarcoma
  62. IDARUBICIN HYDROCHLORIDE [Suspect]
     Active Substance: IDARUBICIN HYDROCHLORIDE
     Indication: Alveolar rhabdomyosarcoma
     Route: 065
  63. IDARUBICIN HYDROCHLORIDE [Suspect]
     Active Substance: IDARUBICIN HYDROCHLORIDE
     Route: 065
  64. IDARUBICIN HYDROCHLORIDE [Suspect]
     Active Substance: IDARUBICIN HYDROCHLORIDE

REACTIONS (16)
  - Neoplasm progression [Unknown]
  - Malignant neoplasm progression [Unknown]
  - Acute myeloid leukaemia [Not Recovered/Not Resolved]
  - Rhabdomyosarcoma recurrent [Not Recovered/Not Resolved]
  - Myelodysplastic syndrome transformation [Unknown]
  - Myelodysplastic syndrome [Not Recovered/Not Resolved]
  - Myelodysplastic syndrome with excess blasts [Unknown]
  - Hyperleukocytosis [Unknown]
  - Chromosome analysis abnormal [Unknown]
  - Pneumonia fungal [Unknown]
  - Thrombocytopenia [Unknown]
  - Toxicity to various agents [Unknown]
  - Hepatosplenomegaly [Unknown]
  - Anaemia [Unknown]
  - Product use in unapproved indication [Unknown]
  - Off label use [Unknown]

NARRATIVE: CASE EVENT DATE: 20090101
